FAERS Safety Report 8337852-9 (Version None)
Quarter: 2012Q2

REPORT INFORMATION
  Report Type: 
  Country: None (occurrence: None)
  Receive Date: 20120504
  Receipt Date: 20120423
  Transmission Date: 20120825
  Serious: Yes (Other)
  Sender: FDA-Public Use
  Company Number: US-ELI_LILLY_AND_COMPANY-US201204009782

PATIENT

DRUGS (3)
  1. CISPLATIN [Concomitant]
     Indication: NEOPLASM
     Dosage: 75 MG/M2, ON DAY 1 EVERY 3 WEEKS
  2. OLAPARIB [Concomitant]
     Indication: NEOPLASM
     Dosage: 100 MG, BID ON DAY 1 EVERY 3 WEEKS
     Route: 048
  3. GEMCITABINE HYDROCHLORIDE [Suspect]
     Indication: NEOPLASM
     Dosage: 500 MG/M2, DAY 1 AND DAY 8 EVERY 3 WEEKS
     Route: 042

REACTIONS (2)
  - PNEUMONITIS [None]
  - HYPOXIA [None]
